FAERS Safety Report 7684944-3 (Version None)
Quarter: 2011Q3

REPORT INFORMATION
  Report Type: 
  Country: None (occurrence: None)
  Receive Date: 20110816
  Receipt Date: 20110811
  Transmission Date: 20111222
  Serious: Yes (Death, Hospitalization)
  Sender: FDA-Public Use
  Company Number: PHHY2010US80986

PATIENT
  Sex: Female
  Weight: 66 kg

DRUGS (12)
  1. RECLAST [Concomitant]
     Dosage: 5 MG/100 ML
  2. EXJADE [Suspect]
     Dosage: 500 MG, UNK
  3. CEFACLOR [Concomitant]
     Dosage: 500 MG, UNK
  4. NITROFURANTOIN [Concomitant]
     Dosage: 50 MG, UNK
  5. EXJADE [Suspect]
     Dosage: 1000 MG, QD
     Route: 048
     Dates: start: 20100612, end: 20101011
  6. TOPROL-XL [Concomitant]
     Dosage: 25 MG, UNK
  7. EXJADE [Suspect]
     Indication: IRON METABOLISM DISORDER
     Dosage: 1000 MG, DAILY
     Route: 048
     Dates: start: 20061201
  8. OMEPRAZOLE [Concomitant]
  9. FOLIC ACID [Concomitant]
     Dosage: 1 MG, DAILY
     Route: 048
  10. COUMADIN [Concomitant]
     Dosage: 2 MG, UNK
  11. CITRACAL + D [Concomitant]
     Dosage: 315 MG, UNK
  12. VITAMIN B-12 [Concomitant]

REACTIONS (9)
  - ALPHA 1 FOETOPROTEIN INCREASED [None]
  - HEPATIC CIRRHOSIS [None]
  - DYSPNOEA [None]
  - HEPATIC STEATOSIS [None]
  - CHEST DISCOMFORT [None]
  - CHOLELITHIASIS [None]
  - HEPATIC NEOPLASM [None]
  - DEATH [None]
  - NEPHROLITHIASIS [None]
